FAERS Safety Report 5650301-4 (Version None)
Quarter: 2008Q1

REPORT INFORMATION
  Report Type: 
  Country: None (occurrence: None)
  Receive Date: 20080305
  Receipt Date: 20080228
  Transmission Date: 20080703
  Serious: Yes (Death)
  Sender: FDA-Public Use
  Company Number: ES-SP-2008-00624

PATIENT
  Age: 49 Year
  Sex: Male

DRUGS (1)
  1. BCG  THERAPEUTICS [Suspect]
     Indication: TRANSITIONAL CELL CARCINOMA

REACTIONS (7)
  - BLOOD PRESSURE DECREASED [None]
  - BOVINE TUBERCULOSIS [None]
  - DYSPNOEA [None]
  - HISTIOCYTOSIS HAEMATOPHAGIC [None]
  - PYREXIA [None]
  - TACHYCARDIA [None]
  - VOMITING [None]
